FAERS Safety Report 10414217 (Version 4)
Quarter: 2015Q1

REPORT INFORMATION
  Report Type: Spontaneous
  Country: BR (occurrence: BR)
  Receive Date: 20140827
  Receipt Date: 20150309
  Transmission Date: 20150720
  Serious: Yes (Disabling, Other)
  Sender: FDA-Public Use
  Company Number: ALCN2014BR004684

PATIENT
  Age: 68 Year
  Sex: Male

DRUGS (5)
  1. PROPARACAINE HCL [Suspect]
     Active Substance: PROPARACAINE HYDROCHLORIDE
     Indication: INTRAOCULAR LENS IMPLANT
     Dosage: 2 GTT, UNK
     Route: 047
     Dates: start: 20140806, end: 20140806
  2. TROPICAMIDA [Concomitant]
     Dosage: 5 ML, UNK
     Route: 047
     Dates: start: 20140806, end: 20140806
  3. FENILEFRINA [Concomitant]
     Active Substance: PHENYLEPHRINE HYDROCHLORIDE
     Dosage: 5 ML, UNK
     Route: 047
     Dates: start: 20140806, end: 20140806
  4. RINGER LACTADO [Concomitant]
     Indication: ELECTROLYTE SUBSTITUTION THERAPY
     Dosage: 500 ML, UNK
     Dates: start: 20140806, end: 20140806
  5. TRYPAN BLUE [Concomitant]
     Active Substance: TRYPAN BLUE
     Dosage: 0.5 ML, UNK
     Route: 047

REACTIONS (2)
  - Blindness [Not Recovered/Not Resolved]
  - Toxic anterior segment syndrome [Unknown]

NARRATIVE: CASE EVENT DATE: 20140806
